FAERS Safety Report 9412619 (Version 1)
Quarter: 2013Q3

REPORT INFORMATION
  Report Type: Spontaneous
  Country: AU (occurrence: AU)
  Receive Date: 20130722
  Receipt Date: 20130722
  Transmission Date: 20140515
  Serious: Yes (Other)
  Sender: FDA-Public Use
  Company Number: AU-TEVA-335668ISR

PATIENT
  Sex: Female

DRUGS (1)
  1. GASTRO-STOP [Suspect]
     Dates: start: 201203

REACTIONS (3)
  - Haemorrhage in pregnancy [Unknown]
  - Blighted ovum [Unknown]
  - Pregnancy [Unknown]
